FAERS Safety Report 10157942 (Version 2)
Quarter: 2014Q2

REPORT INFORMATION
  Report Type: Spontaneous
  Country: AR (occurrence: AR)
  Receive Date: 20140507
  Receipt Date: 20140520
  Transmission Date: 20141212
  Serious: Yes (Hospitalization)
  Sender: FDA-Public Use
  Company Number: AR-ABBVIE-14P-007-1232021-00

PATIENT
  Age: 45 Year
  Sex: Male

DRUGS (3)
  1. ADALIMUMAB [Suspect]
     Indication: PSORIATIC ARTHROPATHY
     Dates: start: 20110831
  2. RIFAMPICIN [Concomitant]
     Indication: PROPHYLAXIS
  3. METHOTREXATO [Concomitant]
     Indication: PRODUCT USED FOR UNKNOWN INDICATION

REACTIONS (15)
  - Urinary retention [Recovering/Resolving]
  - Paraesthesia [Recovering/Resolving]
  - Paraparesis [Recovering/Resolving]
  - Hypoaesthesia [Recovering/Resolving]
  - Extensor plantar response [Recovering/Resolving]
  - Areflexia [Recovering/Resolving]
  - Anal sphincter atony [Recovering/Resolving]
  - Hypoaesthesia [Recovering/Resolving]
  - Sensory level [Recovering/Resolving]
  - Sensorimotor disorder [Recovering/Resolving]
  - Myelitis transverse [Recovering/Resolving]
  - Spinal disorder [Recovering/Resolving]
  - Arthropathy [Recovering/Resolving]
  - Tendonitis [Recovering/Resolving]
  - Psoriatic arthropathy [Recovering/Resolving]
